FAERS Safety Report 13319090 (Version 1)
Quarter: 2017Q1

REPORT INFORMATION
  Report Type: Spontaneous
  Country: US (occurrence: US)
  Receive Date: 20170309
  Receipt Date: 20170309
  Transmission Date: 20170428
  Serious: No
  Sender: FDA-Public Use
  Company Number: None

PATIENT
  Sex: Female

DRUGS (1)
  1. COSENTYX [Suspect]
     Active Substance: SECUKINUMAB
     Indication: MYOCARDITIS
     Dosage: QW FOR 5 WEEKS
     Route: 058
     Dates: start: 20170302

REACTIONS (3)
  - Abdominal pain [None]
  - Mucous stools [None]
  - Haematochezia [None]
